FAERS Safety Report 17729981 (Version 2)
Quarter: 2020Q2

REPORT INFORMATION
  Report Type: Spontaneous
  Country: DE (occurrence: DE)
  Receive Date: 20200430
  Receipt Date: 20200616
  Transmission Date: 20200714
  Serious: Yes (Hospitalization, Other)
  Sender: FDA-Public Use
  Company Number: DE-BRISTOL-MYERS SQUIBB COMPANY-BMS-2020-029572

PATIENT
  Age: 76 Year
  Sex: Male
  Weight: 78 kg

DRUGS (3)
  1. ELIQUIS [Suspect]
     Active Substance: APIXABAN
     Indication: CEREBROVASCULAR ACCIDENT PROPHYLAXIS
     Dosage: 5 MILLIGRAM, BID
     Route: 065
  2. L-THYROXIN [LEVOTHYROXINE] [Concomitant]
     Active Substance: LEVOTHYROXINE SODIUM
     Indication: HYPOTHYROIDISM
     Dosage: 50 MICROGRAM, QD
     Route: 048
  3. ELIQUIS [Suspect]
     Active Substance: APIXABAN
     Indication: EMBOLISM
     Dosage: 2.5 MILLIGRAM, BID
     Route: 065
     Dates: end: 202004

REACTIONS (7)
  - Osteoarthritis [Unknown]
  - Intentional product use issue [Unknown]
  - Streptococcal sepsis [Unknown]
  - Multiple organ dysfunction syndrome [Unknown]
  - Implant site infection [Unknown]
  - Wound haemorrhage [Unknown]
  - Coagulation factor XIII level decreased [Not Recovered/Not Resolved]

NARRATIVE: CASE EVENT DATE: 202001
